FAERS Safety Report 8596286-2 (Version None)
Quarter: 2012Q3

REPORT INFORMATION
  Report Type: 
  Country: None (occurrence: None)
  Receive Date: 20120815
  Receipt Date: 20120806
  Transmission Date: 20120928
  Serious: Yes (Other)
  Sender: FDA-Public Use
  Company Number: US-ASTRAZENECA-2012SE55608

PATIENT
  Age: 67 Year
  Sex: Male

DRUGS (3)
  1. TOPROL-XL [Suspect]
     Route: 048
  2. NEXIUM [Suspect]
     Route: 048
  3. VIMOVO [Suspect]
     Route: 048

REACTIONS (2)
  - DISLOCATION OF VERTEBRA [None]
  - ADVERSE EVENT [None]
